FAERS Safety Report 9681508 (Version 2)
Quarter: 2013Q4

REPORT INFORMATION
  Report Type: Spontaneous
  Country: FR (occurrence: FR)
  Receive Date: 20131111
  Receipt Date: 20131202
  Transmission Date: 20140711
  Serious: Yes (Hospitalization)
  Sender: FDA-Public Use
  Company Number: FR-PFIZER INC-2013317155

PATIENT
  Sex: Female

DRUGS (7)
  1. SIROLIMUS [Suspect]
     Indication: RENAL AND PANCREAS TRANSPLANT
     Dosage: UNK
     Dates: start: 20100222, end: 20120312
  2. TACROLIMUS [Suspect]
     Dosage: UNK
     Dates: start: 20120314
  3. CELLCEPT [Suspect]
     Indication: RENAL AND PANCREAS TRANSPLANT
     Dosage: 250 MG, 2X/DAY
     Route: 048
     Dates: end: 20120312
  4. APROVEL [Concomitant]
  5. CORTANCYL [Concomitant]
  6. ASPEGIC [Concomitant]
  7. OMEPRAZOLE [Concomitant]

REACTIONS (1)
  - Renal failure acute [Recovered/Resolved]
